FAERS Safety Report 12495270 (Version 1)
Quarter: 2016Q2

REPORT INFORMATION
  Report Type: Spontaneous
  Country: US (occurrence: US)
  Receive Date: 20160624
  Receipt Date: 20160624
  Transmission Date: 20160815
  Serious: No
  Sender: FDA-Public Use
  Company Number: US-PFIZER INC-2016286481

PATIENT
  Sex: Female

DRUGS (4)
  1. ADVIL [Suspect]
     Active Substance: IBUPROFEN
     Indication: PAIN
     Dosage: 3 DF, 3X/DAY (3 CAPSULES)
  2. ADVIL [Suspect]
     Active Substance: IBUPROFEN
     Dosage: UNK
  3. ADVIL [Suspect]
     Active Substance: IBUPROFEN
     Dosage: 2 DF, UNK
  4. ADVIL [Suspect]
     Active Substance: IBUPROFEN
     Dosage: 4 DF, 3X/DAY (4 CAPSULES)

REACTIONS (2)
  - Overdose [Unknown]
  - Drug ineffective [Unknown]
